FAERS Safety Report 6985785-2 (Version None)
Quarter: 2010Q3

REPORT INFORMATION
  Report Type: 
  Country: None (occurrence: None)
  Receive Date: 20100915
  Receipt Date: 20100811
  Transmission Date: 20110219
  Serious: No
  Sender: FDA-Public Use
  Company Number: US-BAYER-201019826BCC

PATIENT
  Age: 59 Year
  Sex: Female
  Weight: 70 kg

DRUGS (2)
  1. ALEVE [Suspect]
     Indication: ARTHRALGIA
     Dosage: UNIT DOSE: 220 MG
     Route: 048
     Dates: start: 20100811
  2. CORTISONE ACETATE [Concomitant]
     Route: 065
     Dates: start: 20100810

REACTIONS (3)
  - ERYTHEMA [None]
  - HOT FLUSH [None]
  - PALPITATIONS [None]
